FAERS Safety Report 11333269 (Version 1)
Quarter: 2015Q3

REPORT INFORMATION
  Report Type: Spontaneous
  Country: None (occurrence: US)
  Receive Date: 20150803
  Receipt Date: 20150803
  Transmission Date: 20151125
  Serious: No
  Sender: FDA-Public Use
  Company Number: US-ELI_LILLY_AND_COMPANY-US200712001109

PATIENT
  Age: 26 Year
  Sex: Male
  Weight: 142.86 kg

DRUGS (2)
  1. ZYPREXA INTRAMUSCULAR [Suspect]
     Active Substance: OLANZAPINE
     Dosage: 15 MG, AS NEEDED
     Route: 030
  2. ZYPREXA INTRAMUSCULAR [Suspect]
     Active Substance: OLANZAPINE
     Dosage: 10 MG, AS NEEDED
     Route: 030
     Dates: start: 20071204

REACTIONS (1)
  - Prescribed overdose [Recovered/Resolved]
